FAERS Safety Report 8853921 (Version 1)
Quarter: 2012Q4

REPORT INFORMATION
  Report Type: Report from Study
  Country: TR (occurrence: TR)
  Receive Date: 20121022
  Receipt Date: 20121022
  Transmission Date: 20130627
  Serious: Yes (Hospitalization, Other)
  Sender: FDA-Public Use
  Company Number: PHHY2012TR092660

PATIENT
  Age: 56 Year
  Sex: Female

DRUGS (1)
  1. SANDOSTATIN LAR [Suspect]
     Indication: PANCREATIC NEUROENDOCRINE TUMOUR
     Dosage: 30 mg
     Dates: start: 2010, end: 20120823

REACTIONS (4)
  - Jaundice [Recovering/Resolving]
  - Pyrexia [Recovering/Resolving]
  - Dilatation intrahepatic duct acquired [Unknown]
  - Enterococcal bacteraemia [Unknown]
